FAERS Safety Report 24682144 (Version 1)
Quarter: 2024Q4

REPORT INFORMATION
  Report Type: Spontaneous
  Country: FR (occurrence: FR)
  Receive Date: 20241130
  Receipt Date: 20241130
  Transmission Date: 20250114
  Serious: Yes (Other)
  Sender: CELLTRION
  Company Number: None

PATIENT

DRUGS (4)
  1. RITUXIMAB [Suspect]
     Active Substance: RITUXIMAB
     Indication: B-cell lymphoma
     Dosage: 800 MG, EVERY 1 CYCLE
     Route: 042
     Dates: start: 20240419, end: 20240419
  2. GEMCITABINE [Suspect]
     Active Substance: GEMCITABINE
     Indication: B-cell lymphoma
     Dosage: 2.1 G, 1 CYCLE
     Route: 042
     Dates: start: 20240426, end: 20240426
  3. OXALIPLATIN [Suspect]
     Active Substance: OXALIPLATIN
     Indication: B-cell lymphoma
     Dosage: 200 MG, 1 CYCLE
     Route: 042
     Dates: start: 20240426, end: 20240426
  4. RASBURICASE [Suspect]
     Active Substance: RASBURICASE
     Indication: Hyperuricaemia
     Dosage: 7.5 MG, 1 CYCLE
     Route: 042
     Dates: start: 20240422, end: 20240427

REACTIONS (2)
  - Hepatocellular injury [Recovering/Resolving]
  - Underdose [Unknown]

NARRATIVE: CASE EVENT DATE: 20240429
